FAERS Safety Report 8921076 (Version 1)
Quarter: 2012Q4

REPORT INFORMATION
  Report Type: 
  Country: DK (occurrence: DK)
  Receive Date: 20121121
  Receipt Date: 20121121
  Transmission Date: 20130627
  Serious: Yes (Death, Hospitalization, Other)
  Sender: FDA-Public Use
  Company Number: DK-OTSUKA-EU-2012-10156

PATIENT
  Age: 64 Year
  Sex: Female

DRUGS (10)
  1. SAMSCA [Suspect]
     Indication: HYPONATRAEMIA
     Dosage: 15 Mg milligram(s), qod
     Route: 048
  2. CARBOPLATIN [Concomitant]
     Indication: SMALL CELL LUNG CANCER STAGE UNSPECIFIED
     Dosage: UNK
     Dates: start: 201201
  3. CARBOPLATIN [Concomitant]
     Dosage: UNK
     Dates: start: 20120416
  4. ETOPOSIDE [Concomitant]
     Indication: SMALL CELL LUNG CANCER STAGE UNSPECIFIED
     Dosage: UNK
     Dates: start: 201201
  5. ETOPOSIDE [Concomitant]
     Dosage: UNK
     Dates: start: 20120412
  6. RADIATION THERAPY [Concomitant]
  7. NIZORAL [Concomitant]
     Dosage: 200 Mg milligram(s), tid
     Route: 048
  8. SPIRON [Concomitant]
     Dosage: 100 Mg milligram(s), qd
     Route: 048
  9. KALEORID [Concomitant]
     Dosage: 750 Mg milligram(s), tid
     Route: 048
  10. THIAMINE [Concomitant]
     Dosage: 300 Mg milligram(s), qd
     Route: 048

REACTIONS (9)
  - Sepsis [Fatal]
  - Procedural complication [Fatal]
  - Pancytopenia [Fatal]
  - Escherichia test positive [Fatal]
  - Ileus [Fatal]
  - Respiratory disorder [None]
  - Cushing^s syndrome [None]
  - Abdominal pain [Unknown]
  - Drug dose omission [Unknown]
